FAERS Safety Report 22236464 (Version 1)
Quarter: 2023Q2

REPORT INFORMATION
  Report Type: Spontaneous
  Country: US (occurrence: None)
  Receive Date: 20230420
  Receipt Date: 20230420
  Transmission Date: 20230722
  Serious: Yes (Other)
  Sender: FDA-Public Use
  Company Number: US-ROCHE-3261757

PATIENT
  Sex: Female
  Weight: 51.756 kg

DRUGS (6)
  1. AVASTIN [Suspect]
     Active Substance: BEVACIZUMAB
     Indication: Ovarian cancer
     Dosage: HALF DOSAGE OF NORMAL AMOUNT ;ONGOING: YES
     Route: 065
     Dates: start: 202212
  2. AVASTIN [Suspect]
     Active Substance: BEVACIZUMAB
     Dosage: FULL DOSAGE AMOUNT ;ONGOING: NO
     Route: 065
     Dates: start: 202209, end: 202211
  3. AVASTIN [Suspect]
     Active Substance: BEVACIZUMAB
     Dosage: FULL DOSAGE AMOUNT ;ONGOING: NO
     Route: 065
     Dates: start: 202204, end: 202208
  4. PROLIA [Concomitant]
     Active Substance: DENOSUMAB
     Indication: Osteoporosis
     Dates: start: 2018
  5. AMLODIPINE BESYLATE [Concomitant]
     Active Substance: AMLODIPINE BESYLATE
     Indication: Hypertension
     Route: 048
     Dates: start: 202208
  6. ATENOLOL [Concomitant]
     Active Substance: ATENOLOL
     Indication: Hypertension
     Route: 048
     Dates: start: 202208

REACTIONS (6)
  - Arthralgia [Recovering/Resolving]
  - Arthralgia [Recovering/Resolving]
  - Hypertension [Not Recovered/Not Resolved]
  - Pneumonia [Recovered/Resolved]
  - Cataract [Not Recovered/Not Resolved]
  - Osteopenia [Not Recovered/Not Resolved]

NARRATIVE: CASE EVENT DATE: 20220401
